FAERS Safety Report 17683607 (Version 3)
Quarter: 2020Q4

REPORT INFORMATION
  Report Type: Report from Study
  Country: JP (occurrence: JP)
  Receive Date: 20200420
  Receipt Date: 20201014
  Transmission Date: 20210113
  Serious: Yes (Hospitalization, Other)
  Sender: FDA-Public Use
  Company Number: JP-ROCHE-2573167

PATIENT
  Age: 68 Year
  Sex: Male
  Weight: 64 kg

DRUGS (1)
  1. ATEZOLIZUMAB. [Suspect]
     Active Substance: ATEZOLIZUMAB
     Indication: NON-SMALL CELL LUNG CANCER
     Route: 041
     Dates: start: 20200212, end: 20200304

REACTIONS (4)
  - Pneumonitis [Recovering/Resolving]
  - Pneumonia bacterial [Recovering/Resolving]
  - Hypoglycaemia [Unknown]
  - Hypoalbuminaemia [Unknown]

NARRATIVE: CASE EVENT DATE: 20200316
